FAERS Safety Report 20931543 (Version 2)
Quarter: 2022Q3

REPORT INFORMATION
  Report Type: Spontaneous
  Country: BR (occurrence: BR)
  Receive Date: 20220608
  Receipt Date: 20220713
  Transmission Date: 20221027
  Serious: No
  Sender: FDA-Public Use
  Company Number: BR-AMGEN-BRASP2022089756

PATIENT

DRUGS (1)
  1. PEGFILGRASTIM [Suspect]
     Active Substance: PEGFILGRASTIM
     Indication: Product used for unknown indication
     Dosage: 6 MILLIGRAM (0.64 ML)
     Route: 065

REACTIONS (2)
  - Application site haematoma [Unknown]
  - Device malfunction [Unknown]

NARRATIVE: CASE EVENT DATE: 20220418
